FAERS Safety Report 21732824 (Version 2)
Quarter: 2022Q4

REPORT INFORMATION
  Report Type: Report from Study
  Country: US (occurrence: US)
  Receive Date: 20221215
  Receipt Date: 20221219
  Transmission Date: 20230113
  Serious: No
  Sender: FDA-Public Use
  Company Number: US-002147023-NVSC2022US288518

PATIENT
  Sex: Male

DRUGS (1)
  1. ENTRESTO [Suspect]
     Active Substance: SACUBITRIL\VALSARTAN
     Indication: Product used for unknown indication
     Dosage: 1 DOSAGE FORM, BID (STARTED  APPROXIMATELY APRIL/MAY 2022)
     Route: 048
     Dates: start: 202204

REACTIONS (3)
  - Blood glucose decreased [Unknown]
  - Cough [Unknown]
  - Inappropriate schedule of product administration [Unknown]
